FAERS Safety Report 24695034 (Version 1)
Quarter: 2024Q4

REPORT INFORMATION
  Report Type: Spontaneous
  Country: US (occurrence: None)
  Receive Date: 20241203
  Receipt Date: 20241203
  Transmission Date: 20250115
  Serious: Yes (Hospitalization)
  Sender: Public
  Company Number: None

PATIENT
  Age: 34 Year
  Sex: Female

DRUGS (3)
  1. OPSUMIT [Suspect]
     Active Substance: MACITENTAN
     Indication: Pulmonary arterial hypertension
     Dosage: FREQUENCY : DAILY;?
     Route: 048
     Dates: start: 201801
  2. WINREVAIR [Concomitant]
     Active Substance: SOTATERCEPT-CSRK
  3. TREPROSTINIL [Concomitant]
     Active Substance: TREPROSTINIL

REACTIONS (2)
  - Weight decreased [None]
  - Hypotension [None]

NARRATIVE: CASE EVENT DATE: 20241130
